FAERS Safety Report 7019124-8 (Version None)
Quarter: 2010Q3

REPORT INFORMATION
  Report Type: 
  Country: None (occurrence: None)
  Receive Date: 20100928
  Receipt Date: 20100920
  Transmission Date: 20110219
  Serious: Yes (Other)
  Sender: FDA-Public Use
  Company Number: B0674088A

PATIENT
  Sex: Male

DRUGS (9)
  1. ZOVIRAX [Suspect]
     Indication: PRODUCT USED FOR UNKNOWN INDICATION
     Dosage: 600MG PER DAY
     Route: 042
     Dates: start: 20100403, end: 20100727
  2. VANCOMYCIN [Suspect]
     Indication: PRODUCT USED FOR UNKNOWN INDICATION
     Dosage: 400MG PER DAY
     Route: 042
     Dates: start: 20100403, end: 20100727
  3. ABELCET [Suspect]
     Indication: PRODUCT USED FOR UNKNOWN INDICATION
     Route: 042
     Dates: start: 20100403, end: 20100727
  4. DECADRON [Concomitant]
     Route: 065
  5. BACTRIM [Concomitant]
     Route: 065
  6. MYCOSTATIN [Concomitant]
     Route: 065
  7. MERREM [Concomitant]
     Route: 065
  8. TRIMETON [Concomitant]
     Route: 065
  9. RANIDIL [Concomitant]
     Route: 065

REACTIONS (1)
  - HYPERAMYLASAEMIA [None]
